FAERS Safety Report 4875663-7 (Version None)
Quarter: 2006Q1

REPORT INFORMATION
  Report Type: 
  Country: None (occurrence: None)
  Receive Date: 20060105
  Receipt Date: 20051223
  Transmission Date: 20060701
  Serious: Yes (Hospitalization, Disabling)
  Sender: FDA-Public Use
  Company Number: 2005BL007551

PATIENT
  Age: 75 Year
  Sex: Male

DRUGS (5)
  1. GENTAMICIN SULFATE [Suspect]
  2. ETORICOXIB (ETORICOXIB) [Suspect]
     Indication: OSTEOARTHRITIS
     Dosage: 60 MILLIGRAMS; ORAL
     Route: 048
     Dates: start: 20041001, end: 20041001
  3. CO-TENIDONE [Concomitant]
  4. IRBESARTAN [Concomitant]
  5. DETRUSITOL [Concomitant]

REACTIONS (3)
  - ANAPHYLACTIC REACTION [None]
  - CEREBROVASCULAR ACCIDENT [None]
  - POST PROCEDURAL COMPLICATION [None]
